FAERS Safety Report 9038947 (Version 1)
Quarter: 2013Q1

REPORT INFORMATION
  Report Type: Report from Study
  Country: US (occurrence: US)
  Receive Date: 20130129
  Receipt Date: 20130129
  Transmission Date: 20140127
  Serious: No
  Sender: FDA-Public Use
  Company Number: US-ABBOTT-12P-163-0933301-00

PATIENT
  Age: 47 Year
  Sex: Female

DRUGS (5)
  1. HUMIRA 40 MG/0.8 ML PEN [Suspect]
     Indication: PSORIATIC ARTHROPATHY
     Dates: start: 201107
  2. HUMIRA 40 MG/0.8 ML PEN [Suspect]
     Dates: start: 201109
  3. BENADRYL [Concomitant]
     Indication: PRODUCT USED FOR UNKNOWN INDICATION
  4. LYRICA [Concomitant]
     Indication: FIBROMYALGIA
     Dosage: TWICE TO FOUR TIMES DAILY
  5. PLAQUENIL [Concomitant]
     Indication: PSORIATIC ARTHROPATHY

REACTIONS (8)
  - Migraine [Not Recovered/Not Resolved]
  - Sinusitis [Not Recovered/Not Resolved]
  - Rash [Not Recovered/Not Resolved]
  - Pruritus [Not Recovered/Not Resolved]
  - Burning sensation [Not Recovered/Not Resolved]
  - Erythema [Not Recovered/Not Resolved]
  - Eye irritation [Not Recovered/Not Resolved]
  - Throat irritation [Not Recovered/Not Resolved]
